FAERS Safety Report 9535569 (Version 1)
Quarter: 2013Q3

REPORT INFORMATION
  Report Type: Spontaneous
  Country: US (occurrence: US)
  Receive Date: 20130919
  Receipt Date: 20130919
  Transmission Date: 20140515
  Serious: Yes (Other)
  Sender: FDA-Public Use
  Company Number: US-JNJFOC-20130904133

PATIENT
  Age: 78 Year
  Sex: Female
  Weight: 65.32 kg

DRUGS (2)
  1. IMODIUM [Suspect]
     Route: 065
  2. IMODIUM [Suspect]
     Indication: DIARRHOEA
     Route: 065

REACTIONS (3)
  - Blood pressure increased [Unknown]
  - Overdose [Unknown]
  - Night sweats [Unknown]
